FAERS Safety Report 7381340-3 (Version None)
Quarter: 2011Q1

REPORT INFORMATION
  Report Type: 
  Country: None (occurrence: None)
  Receive Date: 20110321
  Receipt Date: 20110309
  Transmission Date: 20110831
  Serious: Yes (Other)
  Sender: FDA-Public Use
  Company Number: 029196

PATIENT
  Age: 60 Year
  Sex: Male

DRUGS (2)
  1. XYZAL [Suspect]
     Dosage: ORAL
     Route: 048
     Dates: start: 20110302, end: 20110308
  2. BETAMETHASONE [Concomitant]

REACTIONS (1)
  - MUSCLE SPASTICITY [None]
